FAERS Safety Report 10029054 (Version 2)
Quarter: 2014Q2

REPORT INFORMATION
  Report Type: Report from Study
  Country: AU (occurrence: AU)
  Receive Date: 20140321
  Receipt Date: 20140528
  Transmission Date: 20141212
  Serious: Yes (Hospitalization)
  Sender: FDA-Public Use
  Company Number: AU-ALEXION PHARMACEUTICALS INC.-A201400884

PATIENT
  Sex: 0

DRUGS (21)
  1. ECULIZUMAB [Suspect]
     Indication: HAEMOLYTIC URAEMIC SYNDROME
     Dosage: 1200 MG, Q2W
     Route: 042
     Dates: start: 20121205
  2. ATG                                /00575401/ [Concomitant]
     Indication: IMMUNOSUPPRESSION
     Route: 065
  3. AZATHIOPRINE [Concomitant]
     Indication: IMMUNOSUPPRESSANT DRUG THERAPY
     Dosage: 100 MG, QD
     Route: 048
     Dates: start: 20111228
  4. TACROLIMUS HEXAL [Concomitant]
     Indication: IMMUNOSUPPRESSANT DRUG THERAPY
     Dosage: 2 MG, QD
     Route: 048
  5. PREDNISOLONE [Concomitant]
     Indication: IMMUNOSUPPRESSANT DRUG THERAPY
     Dosage: 5 MG, QD
     Route: 048
     Dates: start: 20111228
  6. AMLODIPINE [Concomitant]
     Indication: HYPERTENSION
     Dosage: 10 MG, BID
     Route: 065
  7. AMLODIPINE [Concomitant]
     Dosage: 10 MG, QD
     Route: 048
     Dates: start: 20120128
  8. AMLODIPINE [Concomitant]
     Dosage: 50 MG, QD
     Route: 048
     Dates: start: 20121005
  9. ATENOLOL [Concomitant]
     Indication: PRODUCT USED FOR UNKNOWN INDICATION
     Dosage: 50 MG, QD
     Route: 065
  10. VALGANCICLOVIR [Concomitant]
     Indication: PROPHYLAXIS
     Dosage: 450 MG, QD
     Route: 048
     Dates: start: 20140227, end: 201403
  11. BACTRIM DS [Concomitant]
     Indication: PROPHYLAXIS
     Dosage: 0.5 DF, QD
     Route: 048
     Dates: start: 20120509
  12. HYDROCORTISONE [Concomitant]
     Indication: PROPHYLAXIS
     Dosage: UNK
     Route: 048
     Dates: start: 20140314, end: 20140315
  13. LORATADINE [Concomitant]
     Indication: PROPHYLAXIS
     Dosage: UNK
     Route: 048
     Dates: start: 20140314, end: 20140315
  14. PARACETAMOL [Concomitant]
     Indication: INFUSION RELATED REACTION
     Dosage: UNK
     Route: 048
     Dates: start: 20140314, end: 20140315
  15. PARACETAMOL [Concomitant]
     Dosage: UNK
     Route: 048
     Dates: start: 20140318, end: 20140319
  16. PERINDOPRIL [Concomitant]
     Indication: HYPERTENSION
     Dosage: 2.5 MG, QD
     Route: 048
  17. PERINDOPRIL [Concomitant]
     Dosage: 5 MG, QD
     Route: 048
  18. SIROLIMUS [Concomitant]
     Indication: PRODUCT USED FOR UNKNOWN INDICATION
     Dosage: 0.5 MG, QD
     Route: 048
  19. SIROLIMUS [Concomitant]
     Dosage: 1 MG, QD
     Route: 048
  20. ARANESP [Concomitant]
     Indication: PRODUCT USED FOR UNKNOWN INDICATION
     Dosage: 1 DF, QMONTH
     Route: 058
  21. VALIUM [Concomitant]
     Indication: PRODUCT USED FOR UNKNOWN INDICATION
     Dosage: 5 MG, UNK
     Route: 048

REACTIONS (2)
  - Kidney transplant rejection [Recovering/Resolving]
  - Renal impairment [Recovering/Resolving]
